FAERS Safety Report 10929668 (Version 1)
Quarter: 2015Q1

REPORT INFORMATION
  Report Type: Spontaneous
  Country: US (occurrence: None)
  Receive Date: 20150318
  Receipt Date: 20150318
  Transmission Date: 20150721
  Serious: Yes (Other)
  Sender: FDA-Public Use
  Company Number: None

PATIENT
  Age: 5 Year
  Sex: Male
  Weight: 14.52 kg

DRUGS (6)
  1. SINGULAIR [Suspect]
     Active Substance: MONTELUKAST SODIUM
     Indication: ASTHMA
     Dosage: TAKEN BY MOUTH
     Dates: start: 20150101, end: 20150301
  2. ALBUTEROL/BY NEBULIZER [Concomitant]
  3. ADVAUR [Concomitant]
  4. PROAIR HFA [Concomitant]
     Active Substance: ALBUTEROL SULFATE
  5. LORATADINE. [Concomitant]
     Active Substance: LORATADINE
  6. TYLENOL [Concomitant]
     Active Substance: ACETAMINOPHEN

REACTIONS (6)
  - Agitation [None]
  - Poor quality sleep [None]
  - Obsessive-compulsive disorder [None]
  - Aggression [None]
  - Somnambulism [None]
  - Disorientation [None]

NARRATIVE: CASE EVENT DATE: 20150301
